FAERS Safety Report 7096605-2 (Version None)
Quarter: 2010Q4

REPORT INFORMATION
  Report Type: 
  Country: None (occurrence: None)
  Receive Date: 20101110
  Receipt Date: 20101110
  Transmission Date: 20110411
  Serious: Yes (Hospitalization, Disabling, Other)
  Sender: FDA-Public Use
  Company Number: None

PATIENT
  Age: 16 Year
  Sex: Female
  Weight: 40.8237 kg

DRUGS (1)
  1. ABILIFY [Suspect]
     Indication: DRUG THERAPY
     Dosage: 1 ML 2 TIMES A DAY
     Dates: start: 20100401, end: 20100529

REACTIONS (6)
  - AGITATION [None]
  - DYSTONIA [None]
  - FEELING ABNORMAL [None]
  - INSOMNIA [None]
  - MOOD ALTERED [None]
  - PSYCHOMOTOR SKILLS IMPAIRED [None]
